FAERS Safety Report 7386092-9 (Version None)
Quarter: 2011Q1

REPORT INFORMATION
  Report Type: 
  Country: None (occurrence: None)
  Receive Date: 20110329
  Receipt Date: 20110329
  Transmission Date: 20110831
  Serious: Yes (Other)
  Sender: FDA-Public Use
  Company Number: None

PATIENT
  Age: 83 Year
  Sex: Male
  Weight: 81.8 kg

DRUGS (1)
  1. JANUVIA [Suspect]
     Indication: TYPE 2 DIABETES MELLITUS
     Dosage: 100 MG 1 DAILY ORAL 047
     Route: 048
     Dates: start: 20110128, end: 20110311

REACTIONS (5)
  - NAUSEA [None]
  - DIZZINESS [None]
  - DYSGEUSIA [None]
  - CONVULSION [None]
  - PRESYNCOPE [None]
